FAERS Safety Report 5861067-7 (Version None)
Quarter: 2008Q3

REPORT INFORMATION
  Report Type: 
  Country: None (occurrence: None)
  Receive Date: 20080826
  Receipt Date: 20080820
  Transmission Date: 20090109
  Serious: Yes (Hospitalization)
  Sender: FDA-Public Use
  Company Number: 2008SP001965

PATIENT
  Age: 63 Year
  Sex: Male

DRUGS (12)
  1. LUNESTA [Suspect]
     Indication: INSOMNIA
     Dosage: 3 MG; PRN; ORAL, 6 MG; PRN; ORAL, 9 MG; PRN; ORAL, 12 MG; PRN; ORAL
     Route: 048
     Dates: start: 20010101, end: 20080717
  2. HUMIRA [Suspect]
     Indication: RHEUMATOID ARTHRITIS
     Dates: start: 20080501, end: 20080701
  3. XANAX [Concomitant]
  4. LAMICTAL [Concomitant]
  5. PROZAC [Concomitant]
  6. OXYCONTIN [Concomitant]
  7. PERCOCET [Concomitant]
  8. FINASTERIDE [Concomitant]
  9. MIRAPEX [Concomitant]
  10. CELEBREX [Concomitant]
  11. METHOTREXATE [Concomitant]
  12. PREV MEDS =UNKNOWN [Concomitant]

REACTIONS (7)
  - DRUG INEFFECTIVE [None]
  - HAEMOPTYSIS [None]
  - INSOMNIA [None]
  - LEUKOPENIA [None]
  - OROPHARYNGEAL PAIN [None]
  - THROAT TIGHTNESS [None]
  - THROMBOCYTOPENIA [None]
